FAERS Safety Report 8380161-2 (Version None)
Quarter: 2012Q2

REPORT INFORMATION
  Report Type: 
  Country: None (occurrence: None)
  Receive Date: 20120523
  Receipt Date: 20120516
  Transmission Date: 20120825
  Serious: No
  Sender: FDA-Public Use
  Company Number: US-PFIZER INC-2012119546

PATIENT
  Sex: Male

DRUGS (2)
  1. CHANTIX [Suspect]
     Dosage: UNK
  2. LUNESTA [Suspect]
     Indication: INSOMNIA
     Dosage: UNK

REACTIONS (2)
  - ABNORMAL DREAMS [None]
  - INSOMNIA [None]
